FAERS Safety Report 11482919 (Version 2)
Quarter: 2015Q3

REPORT INFORMATION
  Report Type: Spontaneous
  Country: US (occurrence: US)
  Receive Date: 20150903
  Receipt Date: 20150903
  Transmission Date: 20151125
  Serious: Yes (Other)
  Sender: FDA-Public Use
  Company Number: US-ELI_LILLY_AND_COMPANY-US201204007499

PATIENT
  Sex: Female

DRUGS (2)
  1. CYMBALTA [Suspect]
     Active Substance: DULOXETINE HYDROCHLORIDE
     Dosage: 30 MG, UNK
     Dates: start: 201204, end: 20120422
  2. CYMBALTA [Suspect]
     Active Substance: DULOXETINE HYDROCHLORIDE
     Dosage: 60 MG, UNK
     Dates: start: 20120102

REACTIONS (15)
  - Drug withdrawal convulsions [Unknown]
  - Balance disorder [Unknown]
  - Withdrawal syndrome [Unknown]
  - Fatigue [Unknown]
  - Mood swings [Unknown]
  - Lethargy [Unknown]
  - Depression [Unknown]
  - Drug ineffective [Unknown]
  - Decreased appetite [Unknown]
  - White blood cell count increased [Unknown]
  - Tremor [Unknown]
  - Nausea [Unknown]
  - Feeling abnormal [Unknown]
  - Vomiting [Unknown]
  - Anger [Unknown]

NARRATIVE: CASE EVENT DATE: 20120424
